FAERS Safety Report 21723870 (Version 2)
Quarter: 2023Q1

REPORT INFORMATION
  Report Type: Spontaneous
  Country: US (occurrence: US)
  Receive Date: 20221213
  Receipt Date: 20230119
  Transmission Date: 20230418
  Serious: Yes (Disabling, Other)
  Sender: FDA-Public Use
  Company Number: US-PFIZER INC-PV202200122819

PATIENT
  Age: 57 Year
  Sex: Female
  Weight: 52.8 kg

DRUGS (2)
  1. INLYTA [Suspect]
     Active Substance: AXITINIB
     Dosage: UNK
  2. PEMBROLIZUMAB [Suspect]
     Active Substance: PEMBROLIZUMAB
     Indication: Renal cancer
     Dosage: 200 MG, CYCLIC (Q 21 DAYS)
     Route: 042
     Dates: start: 20220815

REACTIONS (3)
  - Blindness [Unknown]
  - Nausea [Not Recovered/Not Resolved]
  - Keratitis [Recovered/Resolved with Sequelae]
